FAERS Safety Report 8298866-0 (Version None)
Quarter: 2012Q2

REPORT INFORMATION
  Report Type: 
  Country: None (occurrence: None)
  Receive Date: 20120419
  Receipt Date: 20120409
  Transmission Date: 20120825
  Serious: Yes (Other)
  Sender: FDA-Public Use
  Company Number: GB-TEVA-332451ISR

PATIENT
  Age: 25 Year
  Sex: Male
  Weight: 54 kg

DRUGS (1)
  1. ERYTHROMYCIN [Suspect]
     Indication: ORAL INFECTION
     Route: 048
     Dates: start: 20120324

REACTIONS (3)
  - CHEST PAIN [None]
  - DYSPNOEA [None]
  - HYPERSENSITIVITY [None]
